FAERS Safety Report 9644028 (Version 1)
Quarter: 2013Q4

REPORT INFORMATION
  Report Type: Spontaneous
  Country: GB (occurrence: GB)
  Receive Date: 20131024
  Receipt Date: 20131024
  Transmission Date: 20140711
  Serious: Yes (Hospitalization)
  Sender: FDA-Public Use
  Company Number: PHHY2013GB116160

PATIENT
  Age: 8 Year
  Sex: Female
  Weight: 38.8 kg

DRUGS (6)
  1. METRONIDAZOLE [Suspect]
     Indication: DIARRHOEA HAEMORRHAGIC
     Dosage: 300 MG, TID
     Route: 042
     Dates: start: 20130926, end: 20130930
  2. CEFOTAXIME [Concomitant]
     Indication: DIARRHOEA
     Dosage: 1.9 G, QD, 1 DOSE
     Route: 042
     Dates: start: 20130926, end: 20130926
  3. PARACETAMOL [Concomitant]
     Indication: PAIN
     Dosage: 580 MG, QID, WHEN REQUIRED
     Route: 048
     Dates: start: 20130926, end: 20131001
  4. ONDANSETRON [Concomitant]
     Indication: NAUSEA
     Dosage: 4 MG, BID
     Route: 048
     Dates: start: 20130929, end: 20130930
  5. CODEINE PHOSPHATE [Concomitant]
     Indication: PAIN
     Dosage: 38 MG, UNK
     Route: 048
     Dates: start: 20130926, end: 20130926
  6. BUSCOPAN [Concomitant]
     Indication: ABDOMINAL PAIN
     Dosage: 10 MG, UNK
     Route: 048
     Dates: start: 20130926, end: 20130926

REACTIONS (2)
  - Haemolytic uraemic syndrome [Not Recovered/Not Resolved]
  - Intravascular haemolysis [Not Recovered/Not Resolved]
